FAERS Safety Report 21901995 (Version 3)
Quarter: 2023Q1

REPORT INFORMATION
  Report Type: Report from Study
  Country: US (occurrence: None)
  Receive Date: 20230124
  Receipt Date: 20230317
  Transmission Date: 20230417
  Serious: Yes (Other)
  Sender: FDA-Public Use
  Company Number: US-ROCHE-3219308

PATIENT
  Age: 65 Year
  Sex: Female
  Weight: 89.5 kg

DRUGS (24)
  1. RANIBIZUMAB [Suspect]
     Active Substance: RANIBIZUMAB
     Indication: Neovascular age-related macular degeneration
     Dosage: START DATE OF MOST RECENT DOSE (100 MG/ML) OF STUDY DRUG PRIOR TO AE AND SAE WAS ON 27/JUL/2022. EVE
     Route: 050
     Dates: start: 20210309
  2. RANIBIZUMAB [Suspect]
     Active Substance: RANIBIZUMAB
  3. RANIBIZUMAB [Suspect]
     Active Substance: RANIBIZUMAB
  4. RANIBIZUMAB [Suspect]
     Active Substance: RANIBIZUMAB
  5. RANIBIZUMAB [Suspect]
     Active Substance: RANIBIZUMAB
  6. RANIBIZUMAB [Concomitant]
     Active Substance: RANIBIZUMAB
     Dosage: DOSE LAST STUDY DRUG (10 MG/ML) ADMIN PRIOR TO AE AND SAE.
     Route: 050
  7. LEVOTHYROXINE [Concomitant]
     Active Substance: LEVOTHYROXINE
     Indication: Hypothyroidism
     Route: 048
     Dates: start: 201301
  8. ZYRTEC [Concomitant]
     Active Substance: CETIRIZINE HYDROCHLORIDE
     Indication: Seasonal allergy
     Route: 048
     Dates: start: 2004
  9. CALCIUM [Concomitant]
     Active Substance: CALCIUM
     Indication: Osteoporosis
     Route: 048
     Dates: start: 201101
  10. TYLENOL [Concomitant]
     Active Substance: ACETAMINOPHEN
     Indication: Bursitis
     Route: 048
     Dates: start: 20190127
  11. BIOFREEZE [Concomitant]
     Active Substance: MENTHOL
     Indication: Exostosis
     Route: 061
     Dates: start: 2017
  12. COLACE [Concomitant]
     Active Substance: DOCUSATE SODIUM
     Route: 048
     Dates: start: 2014
  13. SYSTANE (HYPROMELLOSE 2910 (4000 MPA.S)) [Concomitant]
     Active Substance: HYPROMELLOSE 2910 (4000 MPA.S)
     Indication: Dry eye
     Route: 047
     Dates: start: 201404
  14. GINKGO [Concomitant]
     Active Substance: GINKGO
     Route: 048
     Dates: start: 201810
  15. GARLIC [Concomitant]
     Active Substance: GARLIC
     Route: 048
  16. GLUCOSAMINE CHONDROITIN COMPLEX ADVANV (UNK INGREDIENTS) [Concomitant]
     Indication: Bursitis
     Route: 048
     Dates: start: 201506
  17. MAGNESIUM [Concomitant]
     Active Substance: MAGNESIUM
     Route: 048
     Dates: start: 201106
  18. FLONASE [Concomitant]
     Active Substance: FLUTICASONE PROPIONATE
     Indication: Seasonal allergy
     Dates: start: 20190815
  19. MECLIZINE [Concomitant]
     Active Substance: MECLIZINE HYDROCHLORIDE
     Indication: Vertigo
     Route: 048
     Dates: start: 20200630
  20. TYLENOL 8 HR ARTHRITIS PAIN [Concomitant]
     Active Substance: ACETAMINOPHEN
     Indication: Contusion
     Route: 048
     Dates: start: 20210227
  21. IBUPROFEN [Concomitant]
     Active Substance: IBUPROFEN
     Indication: Arthritis
     Route: 048
     Dates: start: 20210311
  22. FISH OIL [Concomitant]
     Active Substance: FISH OIL
     Indication: Blood cholesterol increased
     Route: 048
     Dates: start: 20221031
  23. AMOXICILLIN [Concomitant]
     Active Substance: AMOXICILLIN
     Indication: Sinusitis
     Route: 048
     Dates: start: 20230105, end: 20230114
  24. ALKA SELTZER (UNITED STATES) [Concomitant]
     Indication: Gastroenteritis viral
     Dates: start: 202302, end: 202302

REACTIONS (2)
  - Device issue [Unknown]
  - No adverse event [Unknown]

NARRATIVE: CASE EVENT DATE: 20221114
